FAERS Safety Report 6409153-7 (Version None)
Quarter: 2009Q4

REPORT INFORMATION
  Report Type: 
  Country: None (occurrence: None)
  Receive Date: 20091021
  Receipt Date: 20091013
  Transmission Date: 20100525
  Serious: Yes (Hospitalization)
  Sender: FDA-Public Use
  Company Number: PHHY2009FR17066

PATIENT
  Age: 54 Year
  Sex: Female

DRUGS (2)
  1. LAMISIL [Suspect]
     Indication: ONYCHOMYCOSIS
     Dosage: 250 MG/DAY
     Route: 048
  2. LAMICTAL [Suspect]
     Indication: DRUG DISPENSING ERROR

REACTIONS (17)
  - BRONCHIAL DISORDER [None]
  - CONJUNCTIVAL HYPERAEMIA [None]
  - CYTOLYTIC HEPATITIS [None]
  - DRUG DISPENSING ERROR [None]
  - DRUG RASH WITH EOSINOPHILIA AND SYSTEMIC SYMPTOMS [None]
  - DYSPHAGIA [None]
  - EOSINOPHILIA [None]
  - FACE OEDEMA [None]
  - LEUKOCYTOSIS [None]
  - LYMPHOPENIA [None]
  - MALAISE [None]
  - MUCOUS MEMBRANE DISORDER [None]
  - PYREXIA [None]
  - RASH PRURITIC [None]
  - RENAL FAILURE ACUTE [None]
  - SYSTEMIC INFLAMMATORY RESPONSE SYNDROME [None]
  - TOXIC SKIN ERUPTION [None]
